FAERS Safety Report 12222404 (Version 1)
Quarter: 2016Q1

REPORT INFORMATION
  Report Type: Spontaneous
  Country: US (occurrence: US)
  Receive Date: 20160330
  Receipt Date: 20160330
  Transmission Date: 20160526
  Serious: No
  Sender: FDA-Public Use
  Company Number: US-MYLANLABS-2015M1038292

PATIENT
  Sex: Male
  Weight: 124.72 kg

DRUGS (2)
  1. FENTANYL TRANSDERMAL SYSTEM [Suspect]
     Active Substance: FENTANYL
     Indication: PANCREATITIS ACUTE
     Dosage: 100 ?G/HR, Q72H
     Route: 062
  2. FENTANYL TRANSDERMAL SYSTEM [Suspect]
     Active Substance: FENTANYL
     Dosage: 100 ?G/HR, Q48H
     Route: 062

REACTIONS (1)
  - Drug effect decreased [Not Recovered/Not Resolved]
